FAERS Safety Report 16851637 (Version 4)
Quarter: 2024Q1

REPORT INFORMATION
  Report Type: Spontaneous
  Country: US (occurrence: US)
  Receive Date: 20190925
  Receipt Date: 20240108
  Transmission Date: 20240410
  Serious: Yes (Death, Other)
  Sender: FDA-Public Use
  Company Number: US-GILEAD-2019-0429727

PATIENT
  Age: 49 Year
  Sex: Female
  Weight: 48.526 kg

DRUGS (43)
  1. TRUVADA [Suspect]
     Active Substance: EMTRICITABINE\TENOFOVIR DISOPROXIL FUMARATE
     Indication: HIV infection
     Dosage: UNK
     Route: 048
     Dates: start: 201205, end: 201507
  2. COMPLERA [Suspect]
     Active Substance: EMTRICITABINE\RILPIVIRINE HYDROCHLORIDE\TENOFOVIR DISOPROXIL FUMARATE
     Indication: HIV infection
     Dosage: UNK
     Route: 048
     Dates: start: 201201, end: 201204
  3. IRON [Concomitant]
     Active Substance: IRON
  4. EPIVIR [Concomitant]
     Active Substance: LAMIVUDINE
  5. ISENTRESS [Concomitant]
     Active Substance: RALTEGRAVIR POTASSIUM
  6. TIVICAY [Concomitant]
     Active Substance: DOLUTEGRAVIR SODIUM
  7. TRIUMEQ [Concomitant]
     Active Substance: ABACAVIR SULFATE\DOLUTEGRAVIR SODIUM\LAMIVUDINE
  8. ZIAGEN [Concomitant]
     Active Substance: ABACAVIR SULFATE
  9. ALPRAZOLAM [Concomitant]
     Active Substance: ALPRAZOLAM
  10. AMLODIPINE [Concomitant]
     Active Substance: AMLODIPINE BESYLATE
  11. AMOXICILLIN [Concomitant]
     Active Substance: AMOXICILLIN
  12. BENZONATATE [Concomitant]
     Active Substance: BENZONATATE
  13. CALCIUM [Concomitant]
     Active Substance: CALCIUM
  14. CARVEDILOL [Concomitant]
     Active Substance: CARVEDILOL
  15. CEPHALEXIN [Concomitant]
     Active Substance: CEPHALEXIN
  16. CLARITHROMYCIN [Concomitant]
     Active Substance: CLARITHROMYCIN
  17. HYDRALAZINE [Concomitant]
     Active Substance: HYDRALAZINE HYDROCHLORIDE
  18. HYDROXYCHLOROQUINE [Concomitant]
     Active Substance: HYDROXYCHLOROQUINE
  19. ISOSORBIDE [Concomitant]
     Active Substance: ISOSORBIDE
  20. LOSARTAN [Concomitant]
     Active Substance: LOSARTAN
  21. MINOXIDIL [Concomitant]
     Active Substance: MINOXIDIL
  22. OMEPRAZOLE [Concomitant]
     Active Substance: OMEPRAZOLE
  23. SODIUM BICARBONATE [Concomitant]
     Active Substance: SODIUM BICARBONATE
  24. TRAMADOL [Concomitant]
     Active Substance: TRAMADOL\TRAMADOL HYDROCHLORIDE
  25. VALSARTAN [Concomitant]
     Active Substance: VALSARTAN
  26. FERAHEME [Concomitant]
     Active Substance: FERUMOXYTOL NON-STOICHIOMETRIC MAGNETITE
  27. VITAMIN D2 [Concomitant]
     Active Substance: ERGOCALCIFEROL
  28. VITAMIN D3 [Concomitant]
     Active Substance: CHOLECALCIFEROL
  29. AMLODIPINE BESYLATE [Concomitant]
     Active Substance: AMLODIPINE BESYLATE
  30. ESCITALOPRAM [Concomitant]
     Active Substance: ESCITALOPRAM OXALATE
  31. FERROUS SULFATE [Concomitant]
     Active Substance: FERROUS SULFATE
  32. HYDROCORTISONE ACETATE [Concomitant]
     Active Substance: HYDROCORTISONE ACETATE
  33. GAVILAX [Concomitant]
     Active Substance: POLYETHYLENE GLYCOL 3350
  34. GUAIFENESIN [Concomitant]
     Active Substance: GUAIFENESIN
  35. HYDROXYZINE HYDROCHLORIDE [Concomitant]
     Active Substance: HYDROXYZINE HYDROCHLORIDE
  36. IBUPROFEN [Concomitant]
     Active Substance: IBUPROFEN
  37. METOPROLOL [Concomitant]
     Active Substance: METOPROLOL
  38. MUCUS RELIEF ER [Concomitant]
     Active Substance: GUAIFENESIN
  39. VITAMINS NOS [Concomitant]
     Active Substance: VITAMINS
  40. ROBAFEN DM [Concomitant]
     Active Substance: DEXTROMETHORPHAN HYDROBROMIDE\GUAIFENESIN
  41. SENNA PLUS [SENNA ALEXANDRINA] [Concomitant]
  42. SPS [Concomitant]
     Active Substance: SODIUM POLYSTYRENE SULFONATE
  43. VITAMIN B12 [Concomitant]
     Active Substance: CYANOCOBALAMIN

REACTIONS (15)
  - End stage renal disease [Fatal]
  - Chronic kidney disease [Fatal]
  - Renal failure [Fatal]
  - Osteoporosis [Unknown]
  - Acute kidney injury [Recovered/Resolved]
  - Fanconi syndrome acquired [Recovered/Resolved]
  - Osteopenia [Not Recovered/Not Resolved]
  - Nephrogenic anaemia [Not Recovered/Not Resolved]
  - Muscle spasms [Not Recovered/Not Resolved]
  - Depression [Not Recovered/Not Resolved]
  - Pain [Not Recovered/Not Resolved]
  - Emotional distress [Not Recovered/Not Resolved]
  - Anxiety [Not Recovered/Not Resolved]
  - Anhedonia [Not Recovered/Not Resolved]
  - Economic problem [Not Recovered/Not Resolved]

NARRATIVE: CASE EVENT DATE: 20120101
